FAERS Safety Report 14140467 (Version 1)
Quarter: 2017Q4

REPORT INFORMATION
  Report Type: Spontaneous
  Country: RO (occurrence: RO)
  Receive Date: 20171030
  Receipt Date: 20171030
  Transmission Date: 20180321
  Serious: Yes (Life-Threatening, Other)
  Sender: FDA-Public Use
  Company Number: RO-ACCORD-060345

PATIENT
  Sex: Female

DRUGS (4)
  1. AZATHIOPRINE. [Suspect]
     Active Substance: AZATHIOPRINE
     Indication: NODULAR REGENERATIVE HYPERPLASIA
  2. CICLOSPORIN [Suspect]
     Active Substance: CYCLOSPORINE
     Indication: NODULAR REGENERATIVE HYPERPLASIA
  3. CYCLOPHOSPHAMI1 DE/CYCLOPHOSPHAMIDE MONOHYDRATE [Suspect]
     Active Substance: CYCLOPHOSPHAMIDE
     Indication: NODULAR REGENERATIVE HYPERPLASIA
  4. METHOTREXATE. [Suspect]
     Active Substance: METHOTREXATE
     Indication: NODULAR REGENERATIVE HYPERPLASIA

REACTIONS (1)
  - Drug ineffective [Unknown]
